FAERS Safety Report 9551316 (Version 1)
Quarter: 2013Q3

REPORT INFORMATION
  Report Type: Spontaneous
  Country: US (occurrence: None)
  Receive Date: 20130724
  Receipt Date: 20130724
  Transmission Date: 20140515
  Serious: Yes (Hospitalization)
  Sender: FDA-Public Use
  Company Number: PHEH2012US011613

PATIENT
  Age: 78 Year
  Sex: Male

DRUGS (1)
  1. GLEEVEC [Suspect]
     Indication: CHRONIC MYELOID LEUKAEMIA
     Dosage: 400 MG, UNK, ORAL
     Route: 048

REACTIONS (4)
  - Anaemia [None]
  - Gastrointestinal ulcer [None]
  - Haematochezia [None]
  - Haemoglobin decreased [None]
